FAERS Safety Report 6925579-7 (Version None)
Quarter: 2010Q3

REPORT INFORMATION
  Report Type: 
  Country: None (occurrence: None)
  Receive Date: 20100816
  Receipt Date: 20100804
  Transmission Date: 20110219
  Serious: Yes (Other)
  Sender: FDA-Public Use
  Company Number: JP-MERCK-1006USA00657

PATIENT
  Age: 65 Year
  Sex: Female
  Weight: 44 kg

DRUGS (11)
  1. DECADRON [Suspect]
     Indication: PREMEDICATION
     Dosage: DAILY DOSAGE UNKNOWN
     Route: 042
     Dates: start: 20100215, end: 20100514
  2. ZOFRAN [Concomitant]
     Indication: PREMEDICATION
     Route: 042
  3. PACLITAXEL [Concomitant]
     Indication: OVARIAN CANCER
     Dosage: DAILY DOSAGE UNKNOWN
     Route: 042
     Dates: start: 20100215
  4. CARBOPLATIN [Concomitant]
     Indication: OVARIAN CANCER
     Dosage: DAILY DOSAGE UNKNOWN
     Route: 042
     Dates: start: 20100215
  5. AMINO ACID INJ [Concomitant]
     Dosage: DAILY DOSAGE UNKNWON
     Route: 042
  6. DEXTROSE [Concomitant]
     Dosage: DAILY DOSAGE UNKNWON
     Route: 042
  7. MINERALIN [Concomitant]
     Dosage: DAILY DOSAGE UNKNOWN
     Route: 042
  8. SODIUM CHLORIDE [Concomitant]
     Dosage: DAILY DOSAGE UNKNWON
     Route: 042
  9. AMINO ACIDS (UNSPECIFIED) AND CARBOHYDRATES (UNSPECIFIED) AND ELECTROL [Concomitant]
     Dosage: DAILY DOSAGE UNKNWON
     Route: 042
  10. ADONA [Concomitant]
     Dosage: DAILY DOSAGE UNKNWON
     Route: 042
  11. TRANEXAMIC ACID [Concomitant]
     Dosage: DAILY DOSAGE UNKNWON
     Route: 042

REACTIONS (1)
  - SHOCK [None]
